FAERS Safety Report 21778075 (Version 2)
Quarter: 2023Q1

REPORT INFORMATION
  Report Type: Spontaneous
  Country: US (occurrence: US)
  Receive Date: 20221226
  Receipt Date: 20230124
  Transmission Date: 20230418
  Serious: Yes (Hospitalization)
  Sender: FDA-Public Use
  Company Number: US-GLAXOSMITHKLINE-US2022189636

PATIENT

DRUGS (1)
  1. TRELEGY ELLIPTA [Suspect]
     Active Substance: FLUTICASONE FUROATE\UMECLIDINIUM BROMIDE\VILANTEROL TRIFENATATE
     Indication: Chronic obstructive pulmonary disease
     Dosage: 1 PUFF(S), QD
     Route: 065
     Dates: start: 20200101

REACTIONS (4)
  - COVID-19 [Recovered/Resolved]
  - Dyspnoea [Recovered/Resolved]
  - Coronavirus test positive [Unknown]
  - Condition aggravated [Unknown]

NARRATIVE: CASE EVENT DATE: 20221211
